FAERS Safety Report 9234641 (Version 1)
Quarter: 2013Q2

REPORT INFORMATION
  Report Type: Spontaneous
  Country: JP (occurrence: JP)
  Receive Date: 20130416
  Receipt Date: 20130416
  Transmission Date: 20140414
  Serious: Yes (Other)
  Sender: FDA-Public Use
  Company Number: JP-BRISTOL-MYERS SQUIBB COMPANY-18756056

PATIENT
  Age: 47 Year
  Sex: Male

DRUGS (6)
  1. BARACLUDE TABS 0.5 MG [Suspect]
     Route: 048
  2. PHENOBAL [Concomitant]
     Indication: MENTAL DISORDER
  3. TEGRETOL [Concomitant]
     Indication: MENTAL DISORDER
  4. LEVOTOMIN [Concomitant]
     Indication: MENTAL DISORDER
  5. GILENYA [Concomitant]
     Indication: MENTAL DISORDER
  6. RISPERDAL [Concomitant]
     Indication: MENTAL DISORDER

REACTIONS (3)
  - Liver disorder [Unknown]
  - Renal disorder [Unknown]
  - Ascites [Unknown]
